FAERS Safety Report 16857292 (Version 9)
Quarter: 2020Q1

REPORT INFORMATION
  Report Type: Report from Study
  Country: None (occurrence: JP)
  Receive Date: 20190926
  Receipt Date: 20200202
  Transmission Date: 20200409
  Serious: Yes (Hospitalization)
  Sender: FDA-Public Use
  Company Number: JP-ABBVIE-19P-087-2925617-00

PATIENT
  Age: 80 Year
  Sex: Male

DRUGS (2)
  1. DUODOPA [Suspect]
     Active Substance: CARBIDOPA\LEVODOPA
     Indication: PARKINSON^S DISEASE
     Route: 050
     Dates: start: 20190828, end: 2019
  2. DUODOPA [Suspect]
     Active Substance: CARBIDOPA\LEVODOPA
     Dosage: CONTINUOUS DOSE INCREASED
     Route: 050
     Dates: start: 20191120

REACTIONS (12)
  - Asthenia [Unknown]
  - Feeding disorder [Unknown]
  - Dyslalia [Unknown]
  - Intentional device misuse [Unknown]
  - On and off phenomenon [Unknown]
  - Stoma site erythema [Unknown]
  - Therapeutic product effect decreased [Unknown]
  - Weight decreased [Unknown]
  - Malaise [Unknown]
  - Stoma site pain [Recovered/Resolved]
  - Pneumonia aspiration [Unknown]
  - Discomfort [Unknown]

NARRATIVE: CASE EVENT DATE: 2019
